FAERS Safety Report 8858474 (Version 1)
Quarter: 2012Q4

REPORT INFORMATION
  Report Type: 
  Country: US (occurrence: US)
  Receive Date: 20121024
  Receipt Date: 20121024
  Transmission Date: 20130627
  Serious: Yes (Hospitalization)
  Sender: FDA-Public Use
  Company Number: US-009507513-1210USA010127

PATIENT
  Age: 61 Year
  Sex: Male
  Weight: 88.9 kg

DRUGS (9)
  1. VORINOSTAT [Suspect]
     Indication: DIFFUSE LARGE B-CELL LYMPHOMA
     Dosage: 400 mg, qd on days 1-5
     Dates: start: 20120920, end: 20120922
  2. RITUXIMAB [Suspect]
     Indication: DIFFUSE LARGE B-CELL LYMPHOMA
     Dosage: 375 mg/m2, on day 3
     Route: 042
     Dates: start: 20120920, end: 20120920
  3. CYCLOPHOSPHAMIDE [Suspect]
     Indication: DIFFUSE LARGE B-CELL LYMPHOMA
     Dosage: 750 mg/m2, over 30-60 minutes
     Route: 042
     Dates: start: 20120920, end: 20120920
  4. DOXORUBICIN [Suspect]
     Indication: DIFFUSE LARGE B-CELL LYMPHOMA
     Dosage: 50 mg/m2, on day 3
     Route: 042
     Dates: start: 20120920, end: 20120920
  5. VINCRISTINE SULFATE [Suspect]
     Indication: DIFFUSE LARGE B-CELL LYMPHOMA
     Dosage: 1.4 mg/m2, on day 3
     Route: 042
     Dates: start: 20120920, end: 20120920
  6. PREDNISONE [Suspect]
     Indication: DIFFUSE LARGE B-CELL LYMPHOMA
     Dosage: 100 mg, qd on days 3-7
     Route: 048
     Dates: start: 20120920, end: 20120924
  7. ASPIRIN [Suspect]
  8. COMPAZINE [Concomitant]
  9. OXYCODONE [Concomitant]

REACTIONS (3)
  - White blood cell count decreased [Recovered/Resolved]
  - Platelet count decreased [Recovered/Resolved]
  - Urinary tract pain [Recovered/Resolved]
